FAERS Safety Report 14973593 (Version 1)
Quarter: 2018Q2

REPORT INFORMATION
  Report Type: Spontaneous
  Country: DE (occurrence: DE)
  Receive Date: 20180605
  Receipt Date: 20180605
  Transmission Date: 20180711
  Serious: Yes (Other)
  Sender: FDA-Public Use
  Company Number: DE-PFIZER INC-2018221805

PATIENT
  Age: 63 Year
  Sex: Female

DRUGS (10)
  1. SUTENT [Suspect]
     Active Substance: SUNITINIB MALATE
     Dosage: 12.5 MG IN COURSE 34 AND 36
     Dates: start: 20140423
  2. SUTENT [Suspect]
     Active Substance: SUNITINIB MALATE
     Indication: RENAL CELL CARCINOMA
     Dosage: 50 MG, 4/2 SCHEME
     Dates: start: 20090701, end: 20091101
  3. SUTENT [Suspect]
     Active Substance: SUNITINIB MALATE
     Dosage: 50 MG, UNK
     Dates: start: 20100313, end: 20100501
  4. SUTENT [Suspect]
     Active Substance: SUNITINIB MALATE
     Dosage: UNK 26TH COURSE
     Dates: start: 20130228
  5. SUTENT [Suspect]
     Active Substance: SUNITINIB MALATE
     Dosage: UNK
     Dates: start: 20180131
  6. SUTENT [Suspect]
     Active Substance: SUNITINIB MALATE
     Dosage: 50MG 2/1
     Dates: start: 20180208
  7. SUTENT [Suspect]
     Active Substance: SUNITINIB MALATE
     Dosage: UNK
     Dates: start: 20100601, end: 20121024
  8. SUTENT [Suspect]
     Active Substance: SUNITINIB MALATE
     Dosage: 37.5 MG IN COURSE 24
     Dates: start: 20130117
  9. SUTENT [Suspect]
     Active Substance: SUNITINIB MALATE
     Dosage: 25 MG IN COURSE 25, 28, 31
     Dates: end: 20130930
  10. SUTENT [Suspect]
     Active Substance: SUNITINIB MALATE
     Dosage: 37.5 MG, UNK
     Dates: start: 20100201, end: 201002

REACTIONS (3)
  - Pancreatic haemorrhage [Unknown]
  - Pancreatic cyst [Unknown]
  - Neoplasm progression [Unknown]

NARRATIVE: CASE EVENT DATE: 20100312
